FAERS Safety Report 25760629 (Version 4)
Quarter: 2025Q4

REPORT INFORMATION
  Report Type: Report from Study
  Country: EU (occurrence: EU)
  Receive Date: 20250904
  Receipt Date: 20251209
  Transmission Date: 20260117
  Serious: Yes (Hospitalization)
  Sender: TAKEDA
  Company Number: EU-TAKEDA-2025TUS077579

PATIENT
  Age: 71 Year
  Sex: Male

DRUGS (21)
  1. TEDUGLUTIDE [Suspect]
     Active Substance: TEDUGLUTIDE
     Indication: Short-bowel syndrome
     Dosage: 3.95 MILLIGRAM, QD
     Dates: start: 20190425, end: 20210630
  2. TEDUGLUTIDE [Suspect]
     Active Substance: TEDUGLUTIDE
     Dosage: 1.9 MILLIGRAM, QD
     Dates: start: 20210630, end: 20210727
  3. TEDUGLUTIDE [Suspect]
     Active Substance: TEDUGLUTIDE
     Dosage: 3.6 MILLIGRAM, QD
     Dates: start: 20210728, end: 20210930
  4. TEDUGLUTIDE [Suspect]
     Active Substance: TEDUGLUTIDE
     Dosage: 3.7 MILLIGRAM, QD
     Dates: start: 20211001
  5. LANSOPRAZOLE [Concomitant]
     Active Substance: LANSOPRAZOLE
     Indication: Gastrointestinal disorder prophylaxis
     Dosage: 30 MILLIGRAM, QD
     Dates: start: 20100127, end: 20250904
  6. Natecal d flash [Concomitant]
     Indication: Prophylaxis
     Dosage: UNK UNK, QD
     Dates: start: 20111025
  7. CALCIFEDIOL [Concomitant]
     Active Substance: CALCIFEDIOL
     Indication: Prophylaxis
     Dosage: UNK UNK, 1/WEEK
     Dates: start: 20120920
  8. POLARAMINE [Concomitant]
     Active Substance: DEXCHLORPHENIRAMINE MALEATE
     Indication: Urticaria chronic
     Dosage: UNK UNK, QD
     Dates: start: 20100127
  9. Virirec [Concomitant]
     Indication: Erectile dysfunction
     Dosage: 3 MILLIGRAM
     Route: 061
  10. EBASTINE [Concomitant]
     Active Substance: EBASTINE
     Indication: Urticaria chronic
     Dosage: UNK UNK, BID
     Dates: start: 20220509
  11. Fisiogen Ferro Forte [Concomitant]
     Indication: Iron deficiency
     Dosage: UNK UNK, QD
     Dates: start: 20230728
  12. PANCRELIPASE [Concomitant]
     Active Substance: PANCRELIPASE
     Indication: Pancreatic failure
     Dosage: 35000 INTERNATIONAL UNIT
  13. MAGNESIUM SULFATE [Concomitant]
     Active Substance: MAGNESIUM SULFATE
     Indication: Prophylaxis
     Dosage: 148 MILLIGRAM, QD
     Dates: start: 20240718
  14. SANDOSTATIN LAR DEPOT [Concomitant]
     Active Substance: OCTREOTIDE ACETATE
     Indication: Gastrointestinal stoma complication
     Dosage: 30 MILLIGRAM, Q3WEEKS
     Dates: start: 20240926
  15. FUROSEMIDE [Concomitant]
     Active Substance: FUROSEMIDE
     Indication: Hypervolaemia
     Dosage: 20 MILLIGRAM, QD
     Dates: start: 20241115, end: 20250902
  16. FUROSEMIDE [Concomitant]
     Active Substance: FUROSEMIDE
     Dosage: 40 MILLIGRAM, QD
     Dates: start: 20250902, end: 20250922
  17. LOPERAMIDE HYDROCHLORIDE [Concomitant]
     Active Substance: LOPERAMIDE HYDROCHLORIDE
     Indication: Gastrointestinal motility disorder
     Dosage: 2 MILLIGRAM, TID
     Dates: start: 202410
  18. CARVEDILOL [Concomitant]
     Active Substance: CARVEDILOL
     Indication: Portal hypertension
     Dosage: 6.25 MILLIGRAM, BID
     Dates: start: 202410
  19. CARVEDILOL [Concomitant]
     Active Substance: CARVEDILOL
     Indication: Hepatic cirrhosis
  20. SPIRONOLACTONE [Concomitant]
     Active Substance: SPIRONOLACTONE
     Indication: Hypervolaemia
     Dosage: 25 MILLIGRAM, BID
     Dates: start: 20250904
  21. AMOXICILLIN\CLAVULANIC ACID [Concomitant]
     Active Substance: AMOXICILLIN\CLAVULANIC ACID
     Indication: Cellulitis
     Dosage: UNK UNK, TID
     Dates: start: 20250902, end: 20250907

REACTIONS (1)
  - Pyrexia [Recovered/Resolved]

NARRATIVE: CASE EVENT DATE: 20250831
